FAERS Safety Report 15194305 (Version 1)
Quarter: 2018Q3

REPORT INFORMATION
  Report Type: Spontaneous
  Country: US (occurrence: US)
  Receive Date: 20180626
  Receipt Date: 20180626
  Transmission Date: 20181010
  Serious: No
  Sender: FDA-Public Use
  Company Number: None

PATIENT
  Sex: Female

DRUGS (1)
  1. OCREVUS [Suspect]
     Active Substance: OCRELIZUMAB
     Indication: PRODUCT USED FOR UNKNOWN INDICATION
     Dosage: ?          OTHER FREQUENCY:Q6M;?
     Route: 042
     Dates: start: 20170725, end: 20180622

REACTIONS (4)
  - Cognitive disorder [None]
  - Multiple sclerosis relapse [None]
  - Loss of personal independence in daily activities [None]
  - Incoherent [None]
